FAERS Safety Report 6013696-8 (Version None)
Quarter: 2008Q4

REPORT INFORMATION
  Report Type: 
  Country: None (occurrence: None)
  Receive Date: 20081219
  Receipt Date: 20081211
  Transmission Date: 20090506
  Serious: Yes (Hospitalization)
  Sender: FDA-Public Use
  Company Number: A0749694B

PATIENT
  Age: 54 Year
  Sex: Male
  Weight: 62 kg

DRUGS (8)
  1. LAPATINIB [Suspect]
     Dosage: 1500MG PER DAY
     Route: 048
     Dates: start: 20071128
  2. CISPLATIN [Suspect]
     Dosage: 100MGM2 CYCLIC
     Route: 042
     Dates: start: 20071204
  3. RADIOTHERAPY [Suspect]
     Dosage: 4GY PER DAY
     Route: 061
     Dates: start: 20071204
  4. FENTANYL-100 [Concomitant]
     Indication: NECK PAIN
     Dosage: 25MG EVERY 3 DAYS
     Route: 062
     Dates: start: 20080606
  5. FLUMIL [Concomitant]
     Indication: SECRETION DISCHARGE
     Route: 048
     Dates: start: 20081009, end: 20081119
  6. OMEPRAZOLE [Concomitant]
     Indication: PROPHYLAXIS
     Dosage: 20MG PER DAY
     Route: 048
     Dates: start: 20081116
  7. DIAZEPAM [Concomitant]
     Indication: INSOMNIA
     Dosage: 5MG AT NIGHT
     Route: 048
     Dates: start: 20081111
  8. IBUPROFEN [Concomitant]
     Indication: NECK PAIN
     Dosage: 600MG THREE TIMES PER DAY
     Route: 048
     Dates: start: 20080606

REACTIONS (7)
  - ACUTE RESPIRATORY FAILURE [None]
  - ASPHYXIA [None]
  - CYANOSIS [None]
  - DYSPNOEA [None]
  - GENERAL PHYSICAL HEALTH DETERIORATION [None]
  - HYPOXIA [None]
  - PHARYNGEAL OEDEMA [None]
